FAERS Safety Report 10285986 (Version 2)
Quarter: 2014Q3

REPORT INFORMATION
  Report Type: Spontaneous
  Country: US (occurrence: US)
  Receive Date: 20140709
  Receipt Date: 20140709
  Transmission Date: 20150326
  Serious: No
  Sender: FDA-Public Use
  Company Number: US-AMGEN-USASP2014037408

PATIENT
  Age: 14 Year
  Sex: Female
  Weight: 53.06 kg

DRUGS (1)
  1. ENBREL [Suspect]
     Active Substance: ETANERCEPT
     Indication: RHEUMATOID ARTHRITIS
     Dosage: 50 MG, QWK
     Route: 058
     Dates: start: 20140515

REACTIONS (9)
  - Nasopharyngitis [Unknown]
  - Influenza like illness [Unknown]
  - Influenza [Unknown]
  - Headache [Unknown]
  - Burning sensation [Unknown]
  - Arthropathy [Not Recovered/Not Resolved]
  - Feeling cold [Not Recovered/Not Resolved]
  - Oropharyngeal pain [Unknown]
  - Injection site pain [Not Recovered/Not Resolved]

NARRATIVE: CASE EVENT DATE: 201405
